FAERS Safety Report 9674956 (Version 1)
Quarter: 2013Q4

REPORT INFORMATION
  Report Type: Spontaneous
  Country: US (occurrence: None)
  Receive Date: 20131106
  Receipt Date: 20131106
  Transmission Date: 20140711
  Serious: Yes (Hospitalization)
  Sender: FDA-Public Use
  Company Number: None

PATIENT
  Age: 66 Year
  Sex: Male
  Weight: 54.3 kg

DRUGS (1)
  1. BACLOFEN [Suspect]
     Indication: MUSCLE SPASMS
     Route: 048

REACTIONS (6)
  - Somnolence [None]
  - Unresponsive to stimuli [None]
  - Hyporeflexia [None]
  - Depressed level of consciousness [None]
  - Depressed level of consciousness [None]
  - Neurotoxicity [None]
